FAERS Safety Report 25539223 (Version 1)
Quarter: 2025Q3

REPORT INFORMATION
  Report Type: Spontaneous
  Country: US (occurrence: None)
  Receive Date: 20250709
  Receipt Date: 20250709
  Transmission Date: 20251020
  Serious: Yes (Other)
  Sender: FDA-CTU
  Company Number: None

PATIENT
  Age: 5 Year
  Sex: Male
  Weight: 26 kg

DRUGS (1)
  1. AZITHROMYCIN [Suspect]
     Active Substance: AZITHROMYCIN
     Indication: Pneumonia
     Route: 042
     Dates: start: 20250708, end: 20250708

REACTIONS (5)
  - Screaming [None]
  - Crying [None]
  - Infusion related reaction [None]
  - Infusion site pain [None]
  - Infusion site pain [None]

NARRATIVE: CASE EVENT DATE: 20250708
